FAERS Safety Report 17144575 (Version 1)
Quarter: 2019Q4

REPORT INFORMATION
  Report Type: Spontaneous
  Country: JP (occurrence: JP)
  Receive Date: 20191212
  Receipt Date: 20191212
  Transmission Date: 20200122
  Serious: Yes (Other)
  Sender: FDA-Public Use
  Company Number: JP-PFIZER INC-2019531478

PATIENT
  Sex: Female

DRUGS (1)
  1. WYPAX [Suspect]
     Active Substance: LORAZEPAM
     Indication: SOMATIC SYMPTOM DISORDER
     Dosage: UNK
     Route: 048

REACTIONS (4)
  - Dizziness [Recovered/Resolved]
  - Vomiting [Unknown]
  - Palpitations [Recovered/Resolved]
  - Meniere^s disease [Unknown]

NARRATIVE: CASE EVENT DATE: 20190914
